FAERS Safety Report 6641762-2 (Version None)
Quarter: 2010Q1

REPORT INFORMATION
  Report Type: 
  Country: None (occurrence: None)
  Receive Date: 20100319
  Receipt Date: 20100308
  Transmission Date: 20100710
  Serious: Yes (Other)
  Sender: FDA-Public Use
  Company Number: GB-RANBAXY-2009RR-29487

PATIENT
  Age: 76 Year
  Sex: Male

DRUGS (10)
  1. SERTRALINE HCL [Suspect]
     Indication: DEPRESSED MOOD
     Dosage: 50 MG, QD
     Route: 048
  2. SERTRALINE HCL [Suspect]
     Dosage: 100 MG, QD
  3. MIRAPEX [Suspect]
     Indication: PARKINSON'S DISEASE
     Dosage: 1.25 MG, TID
     Route: 048
  4. CIMETIDINE [Concomitant]
  5. FUROSEMIDE [Concomitant]
     Indication: CARDIAC DISORDER
     Dosage: 80 MG, QD
     Route: 048
  6. MADOPAR [Concomitant]
     Indication: PARKINSON'S DISEASE
     Dosage: 375 MG, QD
     Route: 048
  7. QUININE [Concomitant]
     Route: 048
  8. SPIRONOLACTONE [Concomitant]
     Indication: CARDIAC FAILURE CONGESTIVE
     Dosage: 25 MG, QD
  9. INFUMORPH [Concomitant]
     Indication: PAIN
     Dosage: 10 MG, QD
     Route: 048
  10. FRUSONIVE [Concomitant]

REACTIONS (2)
  - VISUAL IMPAIRMENT [None]
  - VITREOUS FLOATERS [None]
